FAERS Safety Report 15639544 (Version 1)
Quarter: 2018Q4

REPORT INFORMATION
  Report Type: Spontaneous
  Country: SI (occurrence: SI)
  Receive Date: 20181120
  Receipt Date: 20181120
  Transmission Date: 20190205
  Serious: Yes (Other)
  Sender: FDA-Public Use
  Company Number: SI-BAYER-2018-211288

PATIENT
  Sex: Male

DRUGS (2)
  1. NEXAVAR [Suspect]
     Active Substance: SORAFENIB
     Indication: HEPATOCELLULAR CARCINOMA
     Dosage: 400 MG, BID
     Route: 048
     Dates: end: 201703
  2. NEXAVAR [Suspect]
     Active Substance: SORAFENIB
     Indication: HEPATOCELLULAR CARCINOMA
     Dosage: 200 MG, BID
     Route: 048
     Dates: start: 201603

REACTIONS (6)
  - Hepatic lesion [None]
  - Portal hypertension [None]
  - Diarrhoea [Recovered/Resolved]
  - Hepatocellular carcinoma [None]
  - Blood pressure increased [Recovering/Resolving]
  - Off label use [None]

NARRATIVE: CASE EVENT DATE: 201702
